FAERS Safety Report 12361087 (Version 1)
Quarter: 2016Q2

REPORT INFORMATION
  Report Type: Spontaneous
  Country: US (occurrence: US)
  Receive Date: 20160512
  Receipt Date: 20160512
  Transmission Date: 20160815
  Serious: No
  Sender: FDA-Public Use
  Company Number: US-BAUSCH-BL-2015-030776

PATIENT
  Age: 83 Year
  Sex: Male
  Weight: 73.55 kg

DRUGS (3)
  1. SYSTANE ULTRA [Concomitant]
     Active Substance: POLYETHYLENE GLYCOL 400\PROPYLENE GLYCOL
     Indication: DRY EYE
     Dosage: 1 DROP IN EACH EYE 10 MINUTES AFTER LATANOPTROST AND TIMOLOL DAILY
     Route: 047
  2. TIMOLOL. [Concomitant]
     Active Substance: TIMOLOL
     Indication: GLAUCOMA
     Dosage: 1 DROP IN EACH EVERY MORNING
     Route: 047
     Dates: start: 2014
  3. LATANOPROST OPHTHALMIC SOLUTION 0.005% [Suspect]
     Active Substance: LATANOPROST
     Indication: GLAUCOMA
     Route: 047

REACTIONS (2)
  - Ocular discomfort [Recovered/Resolved]
  - Superficial injury of eye [Recovered/Resolved]
